FAERS Safety Report 14892484 (Version 1)
Quarter: 2018Q2

REPORT INFORMATION
  Report Type: Spontaneous
  Country: US (occurrence: US)
  Receive Date: 20180514
  Receipt Date: 20180514
  Transmission Date: 20180711
  Serious: Yes (Hospitalization)
  Sender: FDA-Public Use
  Company Number: US-PFIZER INC-2018096349

PATIENT
  Age: 51 Year
  Sex: Female
  Weight: 55.78 kg

DRUGS (3)
  1. ZYVOX [Suspect]
     Active Substance: LINEZOLID
     Indication: MYCOBACTERIUM AVIUM COMPLEX INFECTION
     Dosage: 100MG/5ML, 2X/DAY
     Route: 048
     Dates: start: 201801
  2. ZYVOX [Suspect]
     Active Substance: LINEZOLID
     Indication: MYCOBACTERIUM ABSCESSUS INFECTION
     Dosage: 600 MG, 2X/DAY (600 MG TABLETS TWICE A DAY)
     Dates: start: 2018
  3. ZYVOX [Suspect]
     Active Substance: LINEZOLID
     Indication: MYCOBACTERIUM ABSCESSUS INFECTION
     Dosage: UNK
     Dates: start: 20180109

REACTIONS (9)
  - Nausea [Not Recovered/Not Resolved]
  - Hypokalaemia [Recovered/Resolved]
  - Dizziness [Not Recovered/Not Resolved]
  - Dehydration [Recovered/Resolved]
  - Vomiting [Recovered/Resolved]
  - Asthenia [Not Recovered/Not Resolved]
  - Headache [Not Recovered/Not Resolved]
  - Product use issue [Unknown]
  - Weight decreased [Unknown]

NARRATIVE: CASE EVENT DATE: 201801
